FAERS Safety Report 12181402 (Version 2)
Quarter: 2016Q3

REPORT INFORMATION
  Report Type: Not Available
  Country: JP (occurrence: JP)
  Receive Date: 20160315
  Receipt Date: 20160816
  Transmission Date: 20161109
  Serious: Yes (Death)
  Sender: FDA-Public Use
  Company Number: JP-AKORN-24102

PATIENT
  Age: 95 Year
  Sex: Female

DRUGS (1)
  1. AZASITE [Suspect]
     Active Substance: AZITHROMYCIN MONOHYDRATE

REACTIONS (3)
  - Hyperthermia malignant [Fatal]
  - Urinary tract infection bacterial [Fatal]
  - Pneumonia anthrax [Fatal]

NARRATIVE: CASE EVENT DATE: 20151209
